FAERS Safety Report 9821591 (Version 1)
Quarter: 2014Q1

REPORT INFORMATION
  Report Type: Spontaneous
  Country: US (occurrence: US)
  Receive Date: 20140116
  Receipt Date: 20140116
  Transmission Date: 20141002
  Serious: No
  Sender: FDA-Public Use
  Company Number: US-BIOGENIDEC-2013BI055975

PATIENT
  Age: 44 Year
  Sex: Female
  Weight: 63 kg

DRUGS (16)
  1. TECFIDERA [Suspect]
     Indication: MULTIPLE SCLEROSIS
     Route: 048
  2. TECFIDERA [Suspect]
     Indication: MULTIPLE SCLEROSIS
  3. TYSABRI [Concomitant]
     Indication: MULTIPLE SCLEROSIS
     Route: 042
     Dates: start: 20080408, end: 20090615
  4. TYSABRI [Concomitant]
     Indication: MULTIPLE SCLEROSIS
     Route: 042
     Dates: start: 20100510, end: 20130417
  5. AVONEX [Concomitant]
     Indication: MULTIPLE SCLEROSIS
     Route: 030
     Dates: start: 19971201
  6. REFRESH DRO OP [Concomitant]
  7. RESTASIS EMU [Concomitant]
  8. AMBIEN TAB [Concomitant]
  9. SERTALINE TAB [Concomitant]
  10. VITAMIN D3 CAP [Concomitant]
  11. VITAMIN C CAP [Concomitant]
  12. ALIVE ENERGY TAB WOMENS [Concomitant]
  13. CALCIUM D [Concomitant]
  14. CRANBERRY CAP [Concomitant]
  15. SEASONIQUE TAB [Concomitant]
  16. VITAMIN B 12 [Concomitant]

REACTIONS (4)
  - Metrorrhagia [Unknown]
  - Back pain [Not Recovered/Not Resolved]
  - Urinary tract infection [Not Recovered/Not Resolved]
  - Hot flush [Recovered/Resolved]
